FAERS Safety Report 6868771-2 (Version None)
Quarter: 2010Q3

REPORT INFORMATION
  Report Type: 
  Country: None (occurrence: None)
  Receive Date: 20100721
  Receipt Date: 20100721
  Transmission Date: 20110219
  Serious: Yes (Death)
  Sender: FDA-Public Use
  Company Number: None

PATIENT
  Age: 76 Year
  Sex: Male
  Weight: 81.6475 kg

DRUGS (2)
  1. C-SYRINGE BEVACIZUMAB 2.5MG/0.1 ML LEITER'S PHARMACY [Suspect]
     Indication: MACULAR DEGENERATION
     Dosage: 1.25MG AS NEEDED INTRAOCULAR
     Route: 031
     Dates: start: 20100609, end: 20100720
  2. DEXAMETHASONE [Suspect]
     Dosage: 200 MICROGRAMS AS NEEDED INTRAOCULAR
     Route: 031

REACTIONS (1)
  - CHOROIDAL NEOVASCULARISATION [None]
